FAERS Safety Report 21330835 (Version 1)
Quarter: 2022Q3

REPORT INFORMATION
  Report Type: Spontaneous
  Country: US (occurrence: US)
  Receive Date: 20220914
  Receipt Date: 20220914
  Transmission Date: 20221027
  Serious: Yes (Other)
  Sender: FDA-Public Use
  Company Number: US-SUN PHARMACEUTICAL INDUSTRIES LTD-2022R1-354322

PATIENT
  Sex: Male

DRUGS (2)
  1. FLECAINIDE ACETATE [Suspect]
     Active Substance: FLECAINIDE ACETATE
     Indication: Arrhythmia
     Dosage: UNK (TITRATED UP TO 130 MG/M2/DAY)
     Route: 065
  2. FLECAINIDE ACETATE [Suspect]
     Active Substance: FLECAINIDE ACETATE
     Dosage: 82 MILLIGRAM/SQ. METER, DAILY
     Route: 065

REACTIONS (2)
  - Toxicity to various agents [Unknown]
  - Supraventricular extrasystoles [Recovered/Resolved]
